FAERS Safety Report 9528195 (Version 1)
Quarter: 2013Q3

REPORT INFORMATION
  Report Type: Spontaneous
  Country: FR (occurrence: FR)
  Receive Date: 20130917
  Receipt Date: 20130917
  Transmission Date: 20140515
  Serious: Yes (Life-Threatening)
  Sender: FDA-Public Use
  Company Number: PHHY2013FR102603

PATIENT
  Age: 59 Year
  Sex: Male

DRUGS (2)
  1. LEPONEX [Suspect]
     Indication: DEMENTIA
     Dosage: 12.5 MG, BID
     Route: 048
     Dates: start: 20130821
  2. LEPONEX [Suspect]
     Dosage: 25 MG, BID
     Route: 048
     Dates: start: 20130822, end: 20130829

REACTIONS (2)
  - Circulatory collapse [Recovered/Resolved]
  - Grand mal convulsion [Recovered/Resolved]
